FAERS Safety Report 4923659-9 (Version None)
Quarter: 2006Q1

REPORT INFORMATION
  Report Type: 
  Country: None (occurrence: None)
  Receive Date: 20060224
  Receipt Date: 20060224
  Transmission Date: 20060701
  Serious: Yes (Life-Threatening, Hospitalization)
  Sender: FDA-Public Use
  Company Number: None

PATIENT
  Sex: Female
  Weight: 90.7194 kg

DRUGS (2)
  1. LAMICTAL [Suspect]
     Indication: BIPOLAR DISORDER
     Dosage: TWO TABLETS DAILY PO
     Route: 048
     Dates: start: 20051121, end: 20051207
  2. LAMICTAL [Suspect]
     Indication: DEPRESSION
     Dosage: TWO TABLETS DAILY PO
     Route: 048
     Dates: start: 20051121, end: 20051207

REACTIONS (2)
  - DELIRIUM [None]
  - STEVENS-JOHNSON SYNDROME [None]
